FAERS Safety Report 16474060 (Version 1)
Quarter: 2019Q2

REPORT INFORMATION
  Report Type: Spontaneous
  Country: US (occurrence: US)
  Receive Date: 20190515
  Receipt Date: 20190515
  Transmission Date: 20190711
  Serious: Yes (Hospitalization, Other)
  Sender: FDA-Public Use
  Company Number: None

PATIENT
  Age: 55 Year
  Sex: Female

DRUGS (1)
  1. SIMPONI [Suspect]
     Active Substance: GOLIMUMAB
     Route: 058
     Dates: start: 201807, end: 201905

REACTIONS (3)
  - Thrombocytopenia [None]
  - Guillain-Barre syndrome [None]
  - Lupus-like syndrome [None]

NARRATIVE: CASE EVENT DATE: 20190515
